FAERS Safety Report 15099044 (Version 6)
Quarter: 2018Q3

REPORT INFORMATION
  Report Type: Spontaneous
  Country: SK (occurrence: SK)
  Receive Date: 20180702
  Receipt Date: 20180830
  Transmission Date: 20181010
  Serious: Yes (Hospitalization, Other)
  Sender: FDA-Public Use
  Company Number: SK-PFIZER INC-2018261484

PATIENT
  Age: 70 Year
  Sex: Male

DRUGS (10)
  1. ATORVASTATIN CALCIUM. [Suspect]
     Active Substance: ATORVASTATIN CALCIUM
     Dosage: 20 MG, 1X/DAY (0?0?20)
  2. DOXAZOSIN MESILATE [Suspect]
     Active Substance: DOXAZOSIN MESYLATE
     Dosage: 4 MG, 1X/DAY (0?0?4)
  3. DABIGATRAN [Suspect]
     Active Substance: DABIGATRAN
     Indication: PROPHYLAXIS
     Dosage: 150 MG, UNK (2 X 150 MG) (HE HAD TAKEN THE LAST DOSE SOME 7 HOURS PRIOR TO ADMISSION)
  4. SPIRONOLACTONE. [Suspect]
     Active Substance: SPIRONOLACTONE
     Dosage: 25 MG, DAILY (25?0?0)
     Route: 048
  5. BISOPROLOL [Suspect]
     Active Substance: BISOPROLOL
     Dosage: 5 MG, 1X/DAY (5?0?0)
  6. URAPIDIL [Suspect]
     Active Substance: URAPIDIL
     Dosage: 60 MG, 2X/DAY (60?0?60)
  7. AMIODARONE HCL [Suspect]
     Active Substance: AMIODARONE HYDROCHLORIDE
     Dosage: 200 MG, 1X/DAY (200?0?0)
     Route: 065
  8. METFORMIN [Suspect]
     Active Substance: METFORMIN HYDROCHLORIDE
     Dosage: 850 MG, 2X/DAY (850?0?850)
     Route: 048
  9. NITRENDIPINE [Suspect]
     Active Substance: NITRENDIPINE
     Dosage: 20 MG, 1X/DAY (0?0?20)
  10. TELMISARTAN. [Suspect]
     Active Substance: TELMISARTAN
     Dosage: 80 MG, 1X/DAY (80?0?0)
     Route: 048

REACTIONS (7)
  - Renal failure [Unknown]
  - Blood urine present [Recovered/Resolved]
  - Pollakiuria [Unknown]
  - Dysuria [Unknown]
  - Asthenia [Unknown]
  - Postrenal failure [Recovering/Resolving]
  - Atrial fibrillation [Unknown]
